FAERS Safety Report 23828011 (Version 1)
Quarter: 2024Q2

REPORT INFORMATION
  Report Type: Spontaneous
  Country: KR (occurrence: KR)
  Receive Date: 20240507
  Receipt Date: 20240507
  Transmission Date: 20240716
  Serious: Yes (Other)
  Sender: FDA-Public Use
  Company Number: KR-ALLERGAN-2120988US

PATIENT
  Age: 55 Year
  Sex: Female

DRUGS (1)
  1. OZURDEX [Suspect]
     Active Substance: DEXAMETHASONE
     Indication: Chorioretinitis
     Dosage: TIME INTERVAL: AS NECESSARY: STRENGTH:0.7 MG
     Route: 050

REACTIONS (2)
  - Scleral disorder [Unknown]
  - Intraocular pressure decreased [Unknown]
